FAERS Safety Report 7340977-8 (Version None)
Quarter: 2011Q1

REPORT INFORMATION
  Report Type: 
  Country: None (occurrence: None)
  Receive Date: 20110309
  Receipt Date: 20101109
  Transmission Date: 20110831
  Serious: No
  Sender: FDA-Public Use
  Company Number: US-ABBOTT-10P-163-0685078-00

PATIENT
  Sex: Female
  Weight: 54.48 kg

DRUGS (3)
  1. LUPRON DEPOT [Suspect]
     Indication: ENDOMETRIOSIS
     Dates: start: 20100804, end: 20100804
  2. LEVOXYL [Concomitant]
     Indication: PRODUCT USED FOR UNKNOWN INDICATION
  3. CARDIZEM [Concomitant]
     Indication: PRODUCT USED FOR UNKNOWN INDICATION

REACTIONS (14)
  - ABDOMINAL DISTENSION [None]
  - BLOOD PRESSURE INCREASED [None]
  - MALAISE [None]
  - FATIGUE [None]
  - TRICHORRHEXIS [None]
  - WHEEZING [None]
  - HAIR DISORDER [None]
  - VAGINAL HAEMORRHAGE [None]
  - WEIGHT INCREASED [None]
  - DYSPNOEA [None]
  - ALOPECIA [None]
  - DECREASED APPETITE [None]
  - ABDOMINAL PAIN [None]
  - HAIR TEXTURE ABNORMAL [None]
